FAERS Safety Report 5058750-2 (Version None)
Quarter: 2006Q3

REPORT INFORMATION
  Report Type: 
  Country: None (occurrence: None)
  Receive Date: 20060721
  Receipt Date: 20050504
  Transmission Date: 20061208
  Serious: No
  Sender: FDA-Public Use
  Company Number: US-AMGEN-KDL131655

PATIENT
  Sex: Female

DRUGS (2)
  1. PROCRIT [Suspect]
     Indication: PRE-EXISTING DISEASE
     Route: 058
     Dates: end: 20050101
  2. MEDICINALPRODUCT NOT SPECIFIED BY SENDER [Concomitant]

REACTIONS (3)
  - ARTHRALGIA [None]
  - SWELLING [None]
  - SYNOVIAL CYST [None]
